FAERS Safety Report 12081877 (Version 2)
Quarter: 2016Q1

REPORT INFORMATION
  Report Type: Spontaneous
  Country: US (occurrence: US)
  Receive Date: 20160216
  Receipt Date: 20160223
  Transmission Date: 20160526
  Serious: No
  Sender: FDA-Public Use
  Company Number: US-BIOMARINAP-US-2016-108904

PATIENT
  Sex: Male
  Weight: 14 kg

DRUGS (1)
  1. KUVAN [Suspect]
     Active Substance: SAPROPTERIN DIHYDROCHLORIDE
     Indication: PHENYLKETONURIA
     Dosage: 20 MG/KG, QD
     Route: 048
     Dates: start: 20160126

REACTIONS (2)
  - Cough [Recovered/Resolved]
  - Croup infectious [Recovered/Resolved]
